FAERS Safety Report 6228421-5 (Version None)
Quarter: 2009Q2

REPORT INFORMATION
  Report Type: 
  Country: None (occurrence: None)
  Receive Date: 20090612
  Receipt Date: 20090608
  Transmission Date: 20091009
  Serious: Yes (Hospitalization)
  Sender: FDA-Public Use
  Company Number: BR-ABBOTT-09P-020-0562995-00

PATIENT
  Sex: Female
  Weight: 108 kg

DRUGS (9)
  1. HUMIRA [Suspect]
     Indication: PSORIASIS
     Route: 058
     Dates: start: 20090126, end: 20090301
  2. METHOTREXATE [Concomitant]
     Indication: DRUG USE FOR UNKNOWN INDICATION
     Route: 050
  3. UNKNOWN CORTICOID [Concomitant]
     Indication: DRUG USE FOR UNKNOWN INDICATION
  4. OMEPRAZOLE [Concomitant]
     Indication: DRUG USE FOR UNKNOWN INDICATION
  5. SULFASALAZINE [Concomitant]
     Indication: DRUG USE FOR UNKNOWN INDICATION
  6. FOLIC ACID [Concomitant]
     Indication: DRUG USE FOR UNKNOWN INDICATION
  7. DICLOFENAC SODIUM [Concomitant]
     Indication: PAIN
  8. CALCIUM +VIT D [Concomitant]
     Indication: ARTHRITIS
  9. ENBREL [Concomitant]
     Indication: PSORIASIS
     Dates: start: 20090608

REACTIONS (5)
  - DIABETES MELLITUS [None]
  - DYSPNOEA [None]
  - GENERALISED OEDEMA [None]
  - HYPERTENSION [None]
  - LUNG NEOPLASM [None]
